FAERS Safety Report 6886456-3 (Version None)
Quarter: 2010Q3

REPORT INFORMATION
  Report Type: 
  Country: None (occurrence: None)
  Receive Date: 20100729
  Receipt Date: 20090826
  Transmission Date: 20110219
  Serious: Yes (Hospitalization, Other)
  Sender: FDA-Public Use
  Company Number: US-PFIZER INC-2008099457

PATIENT
  Age: 52 Year
  Sex: Female

DRUGS (1)
  1. CELECOXIB [Suspect]
     Route: 048

REACTIONS (1)
  - HEPATIC FAILURE [None]
